FAERS Safety Report 8260974-8 (Version None)
Quarter: 2012Q2

REPORT INFORMATION
  Report Type: 
  Country: None (occurrence: None)
  Receive Date: 20120405
  Receipt Date: 20120330
  Transmission Date: 20120825
  Serious: No
  Sender: FDA-Public Use
  Company Number: US-PFIZER INC-2012082197

PATIENT
  Sex: Female
  Weight: 72 kg

DRUGS (7)
  1. BYSTOLIC [Concomitant]
     Dosage: 5 MG, 1X/DAY
  2. MUCINEX [Concomitant]
     Dosage: UNK
  3. COVERA-HS [Suspect]
     Indication: HYPERTENSION
     Dosage: 180 MG, 1X/DAY
     Route: 048
     Dates: start: 19960101
  4. COVERA-HS [Suspect]
     Indication: ANGINA PECTORIS
     Dosage: UNK
     Route: 048
  5. ACETYLSALICYLIC ACID [Concomitant]
     Dosage: UNK
  6. VITAMIN D [Concomitant]
     Dosage: UNK
  7. HYDROCHLOROTHIAZIDE [Concomitant]
     Dosage: UNK

REACTIONS (1)
  - FIBROMYALGIA [None]
